FAERS Safety Report 10732639 (Version 1)
Quarter: 2015Q1

REPORT INFORMATION
  Report Type: Spontaneous
  Country: US (occurrence: None)
  Receive Date: 20150120
  Receipt Date: 20150120
  Transmission Date: 20150721
  Serious: Yes (Hospitalization)
  Sender: FDA-Public Use
  Company Number: ABR_01929_2015

PATIENT
  Age: 12 Month
  Sex: Female
  Weight: 8.9 kg

DRUGS (1)
  1. LAMOTRIGINE. [Suspect]
     Active Substance: LAMOTRIGINE
     Indication: PRODUCT USED FOR UNKNOWN INDICATION
     Dosage: (DF [NOT THE PRESCRIBED AMOUNT] ORAL)
     Route: 048

REACTIONS (4)
  - Accidental exposure to product by child [None]
  - Serotonin syndrome [None]
  - Crying [None]
  - Toxicity to various agents [None]
